FAERS Safety Report 19779893 (Version 3)
Quarter: 2021Q3

REPORT INFORMATION
  Report Type: Spontaneous
  Country: CA (occurrence: CA)
  Receive Date: 20210902
  Receipt Date: 20210923
  Transmission Date: 20211014
  Serious: Yes (Other)
  Sender: FDA-Public Use
  Company Number: CA-BAYER-2021-203110

PATIENT
  Age: 83 Year
  Sex: Male
  Weight: 88.3 kg

DRUGS (3)
  1. XOFIGO [Suspect]
     Active Substance: RADIUM RA-223 DICHLORIDE
     Indication: HORMONE-REFRACTORY PROSTATE CANCER
     Dosage: UNK
     Dates: start: 20210826, end: 20210826
  2. XOFIGO [Suspect]
     Active Substance: RADIUM RA-223 DICHLORIDE
     Indication: METASTASES TO BONE
  3. LEUPROLIDE [LEUPRORELIN] [Concomitant]
     Active Substance: LEUPROLIDE ACETATE
     Indication: METASTATIC NEOPLASM
     Dosage: UNK
     Dates: start: 20170722

REACTIONS (2)
  - Fall [Recovering/Resolving]
  - Traumatic fracture [Recovering/Resolving]

NARRATIVE: CASE EVENT DATE: 20210829
